FAERS Safety Report 5167671-6 (Version None)
Quarter: 2006Q4

REPORT INFORMATION
  Report Type: 
  Country: None (occurrence: None)
  Receive Date: 20061201
  Receipt Date: 20061201
  Transmission Date: 20070319
  Serious: Yes (Hospitalization)
  Sender: FDA-Public Use
  Company Number: None

PATIENT
  Age: 85 Year
  Sex: Female
  Weight: 67 kg

DRUGS (18)
  1. LYRICA [Suspect]
     Indication: NEUROPATHY PERIPHERAL
     Dosage: 75 MG TWICE DAILY PO
     Route: 048
     Dates: start: 20061017, end: 20061107
  2. CYMBALTA [Concomitant]
  3. ASPIRIN [Concomitant]
  4. OXYCODONE HCL EXTENDED-RELEASE [Concomitant]
  5. PHENERGAN [Concomitant]
  6. IMODIUM [Concomitant]
  7. APRESOLINE [Concomitant]
  8. ENALAPRIL MALEATE [Concomitant]
  9. LEVOTHYROXINE SODIUM [Concomitant]
  10. TOPROL-XL [Concomitant]
  11. NORVASC [Concomitant]
  12. CLARITIN [Concomitant]
  13. PROTONIX [Concomitant]
  14. FUROSEMIDE [Concomitant]
  15. DICYCLOMINE [Concomitant]
  16. HYDROCODONE WITH APAP 5/500 [Concomitant]
  17. PHENERGAN [Concomitant]
  18. METROGEL [Concomitant]

REACTIONS (5)
  - ABASIA [None]
  - BLOOD CREATININE INCREASED [None]
  - BLOOD UREA INCREASED [None]
  - MYOCLONUS [None]
  - TREMOR [None]
